FAERS Safety Report 6741060-2 (Version None)
Quarter: 2010Q2

REPORT INFORMATION
  Report Type: 
  Country: None (occurrence: None)
  Receive Date: 20100526
  Receipt Date: 20100518
  Transmission Date: 20101027
  Serious: Yes (Other)
  Sender: FDA-Public Use
  Company Number: US-RB-010022-10

PATIENT
  Age: 73 Year
  Sex: Female

DRUGS (1)
  1. MUCINEX DM [Suspect]
     Dosage: TOOK ONE TABLET YESTERDAY MORNING, YESTERDAY EVENING, AND THIS MORNING
     Route: 048
     Dates: start: 20100517

REACTIONS (2)
  - BLOOD PRESSURE INCREASED [None]
  - PARAESTHESIA [None]
